FAERS Safety Report 9179300 (Version 1)
Quarter: 2013Q1

REPORT INFORMATION
  Report Type: Spontaneous
  Country: US (occurrence: US)
  Receive Date: 20130321
  Receipt Date: 20130321
  Transmission Date: 20140127
  Serious: No
  Sender: FDA-Public Use
  Company Number: US-009507513-1303USA007602

PATIENT
  Sex: Male

DRUGS (11)
  1. VICTRELIS [Suspect]
     Indication: HEPATITIS C
     Dosage: 800 MG, TID
     Route: 048
     Dates: start: 20121102, end: 20130307
  2. PEGINTRON [Suspect]
     Indication: HEPATITIS C
     Dosage: UNK
     Dates: start: 201210
  3. RIBAVIRIN (WARRICK) [Suspect]
     Indication: HEPATITIS C
     Dosage: UNK
     Dates: start: 201210
  4. RIBASPHERE [Concomitant]
  5. ATORVASTATIN [Concomitant]
  6. BAYER ASPIRIN [Concomitant]
  7. PROTONA [Concomitant]
  8. PLAVIX [Concomitant]
  9. METOPROLOL [Concomitant]
  10. LISINOPRIL [Concomitant]
  11. ZOPIDEM [Concomitant]

REACTIONS (2)
  - Hepatitis C [Unknown]
  - Unevaluable event [Unknown]
